FAERS Safety Report 5575227-6 (Version None)
Quarter: 2007Q4

REPORT INFORMATION
  Report Type: 
  Country: None (occurrence: None)
  Receive Date: 20071227
  Receipt Date: 20071218
  Transmission Date: 20080405
  Serious: Yes (Other)
  Sender: FDA-Public Use
  Company Number: JP-PFIZER INC-2007106606

PATIENT
  Age: 68 Year
  Sex: Female

DRUGS (6)
  1. NORVASC [Suspect]
     Indication: HYPERTENSION
     Dosage: DAILY DOSE:2.5MG
     Route: 048
  2. ASPIRIN [Suspect]
  3. ENALAPRIL MALEATE [Concomitant]
     Indication: HYPERTENSION
  4. LIPITOR [Concomitant]
  5. SELOKEN [Concomitant]
     Indication: HYPERTENSION
  6. SELBEX [Concomitant]

REACTIONS (2)
  - URINARY BLADDER ABSCESS [None]
  - URINARY BLADDER HAEMORRHAGE [None]
